FAERS Safety Report 18844198 (Version 1)
Quarter: 2021Q1

REPORT INFORMATION
  Report Type: Spontaneous
  Country: US (occurrence: US)
  Receive Date: 20210204
  Receipt Date: 20210204
  Transmission Date: 20210419
  Serious: Yes (Other)
  Sender: FDA-Public Use
  Company Number: US-GLAXOSMITHKLINE-US2021GSK027934

PATIENT
  Sex: Female

DRUGS (5)
  1. RANITIDINE. [Suspect]
     Active Substance: RANITIDINE
     Indication: ULCER
     Dosage: 300 MG, QD
     Route: 065
     Dates: start: 201703, end: 201705
  2. ZANTAC [Suspect]
     Active Substance: RANITIDINE HYDROCHLORIDE
     Indication: ULCER
     Dosage: 150 MG, QD
     Route: 065
     Dates: start: 198910, end: 201703
  3. RANITIDINE CAPSULE [Suspect]
     Active Substance: RANITIDINE
     Indication: ULCER
     Dosage: 150 MG, QD
     Route: 065
     Dates: start: 198910, end: 201703
  4. RANITIDINE. [Suspect]
     Active Substance: RANITIDINE
     Indication: ULCER
     Dosage: 300 MG, QD
     Route: 065
     Dates: start: 201703, end: 201705
  5. ZANTAC [Suspect]
     Active Substance: RANITIDINE HYDROCHLORIDE
     Indication: ULCER
     Dosage: 150 MG, QD
     Route: 065
     Dates: start: 198910, end: 201703

REACTIONS (1)
  - Renal cancer [Unknown]
